FAERS Safety Report 19128404 (Version 1)
Quarter: 2021Q2

REPORT INFORMATION
  Report Type: Report from Study
  Country: US (occurrence: US)
  Receive Date: 20210413
  Receipt Date: 20210413
  Transmission Date: 20210717
  Serious: Yes (Life-Threatening, Hospitalization, Other)
  Sender: FDA-Public Use
  Company Number: US-EMD SERONO-E2B_80035540

PATIENT
  Age: 44 Year
  Sex: Female

DRUGS (6)
  1. REBIF [Suspect]
     Active Substance: INTERFERON BETA-1A
     Indication: MULTIPLE SCLEROSIS
     Route: 058
     Dates: start: 20090925, end: 201806
  2. ZOSYN [Suspect]
     Active Substance: PIPERACILLIN SODIUM\TAZOBACTAM SODIUM
     Indication: UROSEPSIS
     Dosage: THERAPY STRAT DATE JUN 2018
     Route: 042
  3. ZOSYN [Suspect]
     Active Substance: PIPERACILLIN SODIUM\TAZOBACTAM SODIUM
     Indication: URINARY TRACT INFECTION
  4. ZOSYN [Suspect]
     Active Substance: PIPERACILLIN SODIUM\TAZOBACTAM SODIUM
     Indication: DEVICE RELATED INFECTION
  5. REBIF [Suspect]
     Active Substance: INTERFERON BETA-1A
     Route: 058
     Dates: start: 2018
  6. IBUPROFEN. [Concomitant]
     Active Substance: IBUPROFEN
     Indication: INFLUENZA LIKE ILLNESS

REACTIONS (19)
  - Injection site erythema [Recovering/Resolving]
  - Blood magnesium decreased [Unknown]
  - Medical device site cyst [Recovered/Resolved]
  - Gait disturbance [Not Recovered/Not Resolved]
  - Injection site induration [Unknown]
  - Nephrolithiasis [Recovered/Resolved]
  - Urinary tract infection [Recovered/Resolved]
  - Drug hypersensitivity [Unknown]
  - Muscular weakness [Not Recovered/Not Resolved]
  - Atrophy [Recovered/Resolved]
  - Medical device site joint infection [Recovering/Resolving]
  - Loss of consciousness [Recovered/Resolved]
  - Post procedural sepsis [Recovered/Resolved]
  - Gait inability [Recovered/Resolved]
  - Metal poisoning [Recovered/Resolved]
  - Respiratory failure [Recovered/Resolved]
  - Hip arthroplasty [Unknown]
  - Bone cyst [Recovered/Resolved]
  - Depressed mood [Unknown]

NARRATIVE: CASE EVENT DATE: 201111
